FAERS Safety Report 12076166 (Version 1)
Quarter: 2016Q1

REPORT INFORMATION
  Report Type: Spontaneous
  Country: US (occurrence: US)
  Receive Date: 20160215
  Receipt Date: 20160215
  Transmission Date: 20160526
  Serious: No
  Sender: FDA-Public Use
  Company Number: US-LEO PHARMA-240079

PATIENT
  Age: 63 Year
  Sex: Female

DRUGS (1)
  1. PICATO [Suspect]
     Active Substance: INGENOL MEBUTATE
     Indication: PRECANCEROUS SKIN LESION
     Route: 061
     Dates: start: 20151222, end: 20151224

REACTIONS (6)
  - Multiple use of single-use product [Unknown]
  - Application site reaction [Recovered/Resolved]
  - Application site scab [Recovered/Resolved]
  - Application site erythema [Not Recovered/Not Resolved]
  - Application site exfoliation [Recovered/Resolved]
  - Application site swelling [Recovered/Resolved]

NARRATIVE: CASE EVENT DATE: 20151222
